FAERS Safety Report 6090797-X (Version None)
Quarter: 2009Q1

REPORT INFORMATION
  Report Type: 
  Country: None (occurrence: None)
  Receive Date: 20090224
  Receipt Date: 20090203
  Transmission Date: 20090719
  Serious: No
  Sender: FDA-Public Use
  Company Number: US-ABBOTT-09P-163-0501753-00

PATIENT
  Sex: Male
  Weight: 104.42 kg

DRUGS (2)
  1. SIMCOR [Suspect]
     Indication: BLOOD CHOLESTEROL
     Dosage: 500/20
     Route: 048
     Dates: start: 20090123
  2. PREDNISONE [Concomitant]
     Indication: ARTHRITIS
     Dosage: DECREASING PREDNISONE
     Route: 048
     Dates: end: 20090130

REACTIONS (4)
  - DIZZINESS POSTURAL [None]
  - FEELING OF BODY TEMPERATURE CHANGE [None]
  - PALPITATIONS [None]
  - PRURITUS [None]
